FAERS Safety Report 10275548 (Version 1)
Quarter: 2014Q2

REPORT INFORMATION
  Report Type: Spontaneous
  Country: US (occurrence: None)
  Receive Date: 20140630
  Receipt Date: 20140630
  Transmission Date: 20141212
  Serious: Yes (Other)
  Sender: FDA-Public Use
  Company Number: None

PATIENT
  Age: 44 Year
  Sex: Male
  Weight: 71.67 kg

DRUGS (2)
  1. UP+UP KIDS LOTION SPF 50 [Suspect]
     Indication: SUNBURN
     Dates: start: 20140524, end: 20140524
  2. UP+UP KIDS LOTION SPF 50 [Suspect]
     Indication: PROPHYLAXIS
     Dates: start: 20140524, end: 20140524

REACTIONS (1)
  - Application site vesicles [None]
